FAERS Safety Report 4740451-9 (Version None)
Quarter: 2005Q3

REPORT INFORMATION
  Report Type: 
  Country: None (occurrence: None)
  Receive Date: 20050810
  Receipt Date: 20050707
  Transmission Date: 20060218
  Serious: Yes (Death, Other)
  Sender: FDA-Public Use
  Company Number: US-BRISTOL-MYERS SQUIBB COMPANY-13030242

PATIENT
  Age: 64 Year
  Sex: Male

DRUGS (2)
  1. PARAPLATIN [Suspect]
     Indication: NEUROENDOCRINE CARCINOMA OF THE SKIN
     Route: 042
     Dates: start: 20050322, end: 20050602
  2. ETOPOSIDE [Concomitant]
     Route: 042

REACTIONS (3)
  - DEATH [None]
  - MALIGNANT NEOPLASM PROGRESSION [None]
  - THERAPY NON-RESPONDER [None]
